FAERS Safety Report 24139705 (Version 1)
Quarter: 2024Q3

REPORT INFORMATION
  Report Type: Report from Study
  Country: US (occurrence: US)
  Receive Date: 20240726
  Receipt Date: 20240726
  Transmission Date: 20241017
  Serious: Yes (Other)
  Sender: ROCHE
  Company Number: US-ROCHE-10000027561

PATIENT
  Sex: Female

DRUGS (2)
  1. XOLAIR [Suspect]
     Active Substance: OMALIZUMAB
     Indication: Asthma
     Route: 058
  2. XOLAIR [Suspect]
     Active Substance: OMALIZUMAB

REACTIONS (8)
  - Fatigue [Unknown]
  - Monoplegia [Unknown]
  - Ocular vascular disorder [Unknown]
  - Eye disorder [Unknown]
  - Anaphylactic reaction [Unknown]
  - Bronchitis [Unknown]
  - Pneumonia [Unknown]
  - Blood immunoglobulin E increased [Unknown]
